FAERS Safety Report 6137948-6 (Version None)
Quarter: 2009Q1

REPORT INFORMATION
  Report Type: 
  Country: None (occurrence: None)
  Receive Date: 20090331
  Receipt Date: 20090319
  Transmission Date: 20090719
  Serious: Yes (Other)
  Sender: FDA-Public Use
  Company Number: BR-PFIZER INC-2009186381

PATIENT

DRUGS (1)
  1. FARLUTAL [Suspect]
     Indication: AMENORRHOEA
     Dosage: 10 MG, 1X/DAY
     Route: 048
     Dates: start: 20090316

REACTIONS (3)
  - BURNING SENSATION [None]
  - RASH PAPULAR [None]
  - RASH PRURITIC [None]
